FAERS Safety Report 6883832-X (Version None)
Quarter: 2010Q3

REPORT INFORMATION
  Report Type: 
  Country: None (occurrence: None)
  Receive Date: 20100729
  Receipt Date: 20100726
  Transmission Date: 20110219
  Serious: Yes (Hospitalization, Other)
  Sender: FDA-Public Use
  Company Number: US-BRISTOL-MYERS SQUIBB COMPANY-15209760

PATIENT
  Age: 81 Year
  Sex: Female
  Weight: 67 kg

DRUGS (4)
  1. METFORMIN HCL [Suspect]
  2. LISINOPRIL [Suspect]
  3. SYNTHROID [Suspect]
  4. PLAVIX [Suspect]

REACTIONS (3)
  - CEREBRAL HAEMORRHAGE [None]
  - DYSARTHRIA [None]
  - VIITH NERVE PARALYSIS [None]
